FAERS Safety Report 9272018 (Version 1)
Quarter: 2013Q2

REPORT INFORMATION
  Report Type: Spontaneous
  Country: BR (occurrence: BR)
  Receive Date: 20130506
  Receipt Date: 20130506
  Transmission Date: 20140414
  Serious: Yes (Other)
  Sender: FDA-Public Use
  Company Number: BR-PFIZER INC-2013117496

PATIENT
  Age: 46 Year
  Sex: Female
  Weight: 47 kg

DRUGS (1)
  1. ECALTA [Suspect]
     Indication: SYSTEMIC CANDIDA
     Dosage: 200 MG, DAILY
     Route: 042
     Dates: start: 20130408, end: 20130408

REACTIONS (2)
  - Muscle contractions involuntary [Recovered/Resolved]
  - Stubbornness [Unknown]
